FAERS Safety Report 7283076-6 (Version None)
Quarter: 2011Q1

REPORT INFORMATION
  Report Type: 
  Country: None (occurrence: None)
  Receive Date: 20110209
  Receipt Date: 20110113
  Transmission Date: 20110831
  Serious: Yes (Death, Life-Threatening)
  Sender: FDA-Public Use
  Company Number: US-ROCHE-756282

PATIENT

DRUGS (3)
  1. CARBOPLATIN [Suspect]
     Route: 065
  2. PACLITAXEL [Suspect]
     Route: 065
  3. BEVACIZUMAB [Suspect]
     Route: 065

REACTIONS (2)
  - FEBRILE NEUTROPENIA [None]
  - LARGE INTESTINE PERFORATION [None]
